FAERS Safety Report 21749256 (Version 1)
Quarter: 2022Q4

REPORT INFORMATION
  Report Type: Spontaneous
  Country: US (occurrence: US)
  Receive Date: 20221219
  Receipt Date: 20221219
  Transmission Date: 20230112
  Serious: No
  Sender: FDA-Public Use
  Company Number: US-Calliditas-2022CAL00623

PATIENT
  Age: 35 Year
  Sex: Female

DRUGS (1)
  1. TARPEYO [Suspect]
     Active Substance: BUDESONIDE
     Indication: IgA nephropathy
     Dosage: 16MG (4MG CAPSULES) DAILY
     Route: 048
     Dates: start: 20221102

REACTIONS (6)
  - Bone pain [Unknown]
  - Asthenia [Unknown]
  - Fatigue [Unknown]
  - Lethargy [Unknown]
  - Myalgia [Unknown]
  - Increased appetite [Unknown]

NARRATIVE: CASE EVENT DATE: 20221201
